FAERS Safety Report 6259510-7 (Version None)
Quarter: 2009Q3

REPORT INFORMATION
  Report Type: 
  Country: None (occurrence: None)
  Receive Date: 20090708
  Receipt Date: 20090629
  Transmission Date: 20100115
  Serious: Yes (Hospitalization)
  Sender: FDA-Public Use
  Company Number: DE-BRISTOL-MYERS SQUIBB COMPANY-14350805

PATIENT
  Age: 76 Year
  Sex: Male
  Weight: 88 kg

DRUGS (16)
  1. CETUXIMAB [Suspect]
     Indication: GASTROOESOPHAGEAL CANCER
     Dosage: 5MG/ML MOST RECENT INFUSION ON 09-SEP-2008.
     Route: 042
     Dates: start: 20080902, end: 20080909
  2. CISPLATIN [Suspect]
     Indication: GASTROOESOPHAGEAL CANCER
     Dosage: ON DAY 1 OF CYCLE
     Route: 042
     Dates: start: 20080902, end: 20080902
  3. CAPECITABINE [Suspect]
     Indication: GASTROOESOPHAGEAL CANCER
     Dosage: MOST RECENT INFUSION 14-SEP-08. FORM = TABS.  ON DAY 1-15
     Route: 048
     Dates: start: 20080902, end: 20080914
  4. ACARBOSE [Concomitant]
     Route: 048
     Dates: start: 20060101, end: 20080901
  5. SIMVASTATIN [Concomitant]
     Route: 048
     Dates: start: 20070101, end: 20080901
  6. AMLODIPINE [Concomitant]
     Route: 048
     Dates: start: 20070101, end: 20080901
  7. IBUPROFEN [Concomitant]
     Route: 048
     Dates: start: 20070101, end: 20080901
  8. CLEMASTINE FUMARATE [Concomitant]
     Indication: PROPHYLAXIS
     Route: 042
     Dates: start: 20080902, end: 20080903
  9. APREPITANT [Concomitant]
     Indication: PROPHYLAXIS
     Route: 048
     Dates: start: 20080902, end: 20080904
  10. PALONOSETRON [Concomitant]
     Indication: PROPHYLAXIS
     Route: 042
     Dates: start: 20080902, end: 20080903
  11. DEXAMETHASONE [Concomitant]
     Indication: PROPHYLAXIS
     Route: 042
     Dates: start: 20080902, end: 20080903
  12. SODIUM CHLORIDE [Concomitant]
     Indication: PROPHYLAXIS
     Route: 042
     Dates: start: 20080902, end: 20080903
  13. MANNITOL [Concomitant]
     Indication: PROPHYLAXIS
     Dosage: 20%
     Route: 042
     Dates: start: 20080902, end: 20080903
  14. MAGNESIUM SULFATE [Concomitant]
     Indication: PROPHYLAXIS
     Route: 042
     Dates: start: 20080902, end: 20080903
  15. POTASSIUM CHLORIDE [Concomitant]
     Indication: PROPHYLAXIS
     Dosage: 7.46%
     Route: 042
     Dates: start: 20080902, end: 20080903
  16. LOSARTAN POTASSIUM [Concomitant]
     Dates: start: 20080601, end: 20080901

REACTIONS (2)
  - DIARRHOEA [None]
  - ILEUS [None]
